FAERS Safety Report 13522523 (Version 1)
Quarter: 2017Q2

REPORT INFORMATION
  Report Type: Spontaneous
  Country: US (occurrence: US)
  Receive Date: 20170508
  Receipt Date: 20170508
  Transmission Date: 20170830
  Serious: Yes (Other)
  Sender: FDA-Public Use
  Company Number: US-009507513-1705USA000961

PATIENT
  Sex: Male

DRUGS (1)
  1. KEYTRUDA [Suspect]
     Active Substance: PEMBROLIZUMAB
     Indication: ADENOCARCINOMA
     Dosage: UNK

REACTIONS (5)
  - Product use in unapproved indication [Unknown]
  - Thoracostomy [Unknown]
  - Asthenia [Unknown]
  - Tumour pseudoprogression [Unknown]
  - Fatigue [Unknown]
